FAERS Safety Report 23220245 (Version 2)
Quarter: 2023Q4

REPORT INFORMATION
  Report Type: Report from Study
  Country: US (occurrence: US)
  Receive Date: 20231123
  Receipt Date: 20231130
  Transmission Date: 20240110
  Serious: Yes (Death, Hospitalization)
  Sender: FDA-Public Use
  Company Number: US-ABBVIE-5508600

PATIENT
  Sex: Male
  Weight: 65.77 kg

DRUGS (3)
  1. CREON [Suspect]
     Active Substance: PANCRELIPASE AMYLASE\PANCRELIPASE LIPASE\PANCRELIPASE PROTEASE
     Indication: Pancreatic failure
     Dosage: FORM STRENGTH: 24000 UNIT,?FREQUENCY TEXT: 2 CAPS PER MEAL; 1 CAP PER SNACK
     Route: 048
     Dates: start: 202107, end: 202303
  2. JAKAFI [Concomitant]
     Active Substance: RUXOLITINIB
     Indication: Polycythaemia vera
  3. NAMENDA [Concomitant]
     Active Substance: MEMANTINE HYDROCHLORIDE
     Indication: Dementia Alzheimer^s type

REACTIONS (3)
  - Lung neoplasm malignant [Fatal]
  - Urinary tract infection [Recovered/Resolved]
  - Cystitis [Recovered/Resolved]

NARRATIVE: CASE EVENT DATE: 20220101
